FAERS Safety Report 10184259 (Version 1)
Quarter: 2014Q2

REPORT INFORMATION
  Report Type: Spontaneous
  Country: US (occurrence: US)
  Receive Date: 20140520
  Receipt Date: 20140520
  Transmission Date: 20141212
  Serious: No
  Sender: FDA-Public Use
  Company Number: US-ASTRAZENECA-2013SE62989

PATIENT
  Age: 65 Year
  Sex: Female
  Weight: 58.5 kg

DRUGS (4)
  1. RHINOCORT AQUA [Suspect]
     Indication: NASAL POLYPS
     Dosage: 2 SPRAYS EACH NOSTRIL DAILY
     Route: 045
     Dates: start: 201211, end: 201301
  2. RHINOCORT AQUA [Suspect]
     Indication: NASAL POLYPS
     Dosage: 2 SPRAYS EACH NOSTRIL DAILY
     Route: 045
     Dates: start: 201307, end: 201307
  3. PREMARIN [Concomitant]
     Indication: HORMONE REPLACEMENT THERAPY
     Route: 048
     Dates: start: 1995
  4. HYDROCHLORTHYAZIDE [Concomitant]
     Indication: BLOOD PRESSURE ABNORMAL
     Route: 048

REACTIONS (4)
  - Neck pain [Recovered/Resolved]
  - Feeling abnormal [Recovered/Resolved]
  - Incorrect product storage [Recovered/Resolved]
  - Off label use [Recovered/Resolved]
